FAERS Safety Report 4595464-7 (Version None)
Quarter: 2005Q1

REPORT INFORMATION
  Report Type: 
  Country: None (occurrence: None)
  Receive Date: 20050224
  Receipt Date: 20050203
  Transmission Date: 20050727
  Serious: Yes (Other)
  Sender: FDA-Public Use
  Company Number: USA050289915

PATIENT
  Sex: Female

DRUGS (3)
  1. CYMBALTA [Suspect]
     Indication: DEPRESSION
     Dosage: 30 MG DAY
     Dates: start: 20041201
  2. SYNTHROID [Concomitant]
  3. CENESTIN (ESTROGENS CONJUGATED) [Concomitant]

REACTIONS (3)
  - CEREBRAL INFARCTION [None]
  - FACIAL PALSY [None]
  - MYDRIASIS [None]
